FAERS Safety Report 16275396 (Version 1)
Quarter: 2019Q2

REPORT INFORMATION
  Report Type: Spontaneous
  Country: US (occurrence: US)
  Receive Date: 20190401
  Receipt Date: 20190401
  Transmission Date: 20190711
  Serious: No
  Sender: FDA-Public Use
  Company Number: None

PATIENT
  Age: 60 Year
  Sex: Female
  Weight: 51.71 kg

DRUGS (11)
  1. GABAPENTIN. [Concomitant]
     Active Substance: GABAPENTIN
  2. BUPROPION. [Concomitant]
     Active Substance: BUPROPION
  3. FLUTACASONE PROP [Concomitant]
  4. PRAVASTATIN SODIUM. [Concomitant]
     Active Substance: PRAVASTATIN SODIUM
  5. MELOXICAM. [Concomitant]
     Active Substance: MELOXICAM
  6. RANITIDINE. [Concomitant]
     Active Substance: RANITIDINE
  7. CYCLOBENZAPRINE. [Concomitant]
     Active Substance: CYCLOBENZAPRINE
  8. LOSARTAN POTASSIUM. [Suspect]
     Active Substance: LOSARTAN POTASSIUM
     Indication: BLOOD PRESSURE MEASUREMENT
     Dosage: ?          QUANTITY:50 MG MILLIGRAM(S);?
     Route: 048
     Dates: start: 20170320, end: 20190304
  9. HYDROCHLOROTHIAZIDE. [Concomitant]
     Active Substance: HYDROCHLOROTHIAZIDE
  10. SPIRONOLACTONE. [Concomitant]
     Active Substance: SPIRONOLACTONE
  11. FERROUS SULFATE. [Concomitant]
     Active Substance: FERROUS SULFATE

REACTIONS (3)
  - Pain in extremity [None]
  - Recalled product administered [None]
  - Headache [None]

NARRATIVE: CASE EVENT DATE: 20190301
